FAERS Safety Report 21311914 (Version 1)
Quarter: 2022Q3

REPORT INFORMATION
  Report Type: Spontaneous
  Country: CN (occurrence: CN)
  Receive Date: 20220909
  Receipt Date: 20220909
  Transmission Date: 20221027
  Serious: Yes (Hospitalization, Other)
  Sender: FDA-Public Use
  Company Number: None

PATIENT
  Age: 73 Year
  Sex: Male
  Weight: 70 kg

DRUGS (4)
  1. CYCLOPHOSPHAMIDE [Suspect]
     Active Substance: CYCLOPHOSPHAMIDE
     Indication: Non-Hodgkin^s lymphoma
     Dosage: 1.2 G, ONCE DAILY, DAY 1
     Route: 041
     Dates: start: 20220811, end: 20220811
  2. EPIRUBICIN HYDROCHLORIDE [Suspect]
     Active Substance: EPIRUBICIN HYDROCHLORIDE
     Indication: Non-Hodgkin^s lymphoma
     Dosage: 90 MG, ONCE DAILY, DAY 1
     Route: 041
     Dates: start: 20220811, end: 20220811
  3. VINDESINE SULFATE [Suspect]
     Active Substance: VINDESINE SULFATE
     Indication: Non-Hodgkin^s lymphoma
     Dosage: 3 MG, ONCE DAILY, DAY 1
     Route: 041
     Dates: start: 20220811, end: 20220811
  4. DEXAMETHASONE [Suspect]
     Active Substance: DEXAMETHASONE
     Indication: Non-Hodgkin^s lymphoma
     Dosage: 15 MG, DAY 1-5
     Route: 065
     Dates: start: 20220811, end: 20220815

REACTIONS (8)
  - Gastrointestinal disorder [Recovered/Resolved]
  - Diarrhoea [Recovered/Resolved]
  - Nausea [Recovered/Resolved]
  - Vomiting [Recovered/Resolved]
  - White blood cell count decreased [Recovered/Resolved]
  - Neutrophil count decreased [Recovered/Resolved]
  - Myelosuppression [Recovered/Resolved]
  - Gastroenteritis [Unknown]

NARRATIVE: CASE EVENT DATE: 20220822
